FAERS Safety Report 9272988 (Version 1)
Quarter: 2013Q2

REPORT INFORMATION
  Report Type: Spontaneous
  Country: US (occurrence: US)
  Receive Date: 20130506
  Receipt Date: 20130506
  Transmission Date: 20140414
  Serious: Yes (Death, Hospitalization, Other)
  Sender: FDA-Public Use
  Company Number: US-ASTRAZENECA-2013SE30275

PATIENT
  Age: 78 Year
  Sex: Female

DRUGS (2)
  1. BRILINTA [Suspect]
     Indication: STENT PLACEMENT
     Dosage: DAILY
     Route: 048
     Dates: start: 20120227
  2. UNSPECIFIED ANTICOAGULANT [Suspect]
     Route: 065

REACTIONS (8)
  - Cardio-respiratory arrest [Fatal]
  - Aortic aneurysm [Unknown]
  - Trigeminal neuralgia [Unknown]
  - Haemorrhage [Unknown]
  - Blood cholesterol increased [Unknown]
  - Arteriosclerosis [Unknown]
  - Hypertension [Unknown]
  - Dyspnoea [Unknown]
